FAERS Safety Report 6623574-9 (Version None)
Quarter: 2010Q1

REPORT INFORMATION
  Report Type: 
  Country: None (occurrence: None)
  Receive Date: 20100310
  Receipt Date: 20100225
  Transmission Date: 20100710
  Serious: Yes (Other)
  Sender: FDA-Public Use
  Company Number: US-PFIZER INC-2010025149

PATIENT
  Sex: Female
  Weight: 121.54 kg

DRUGS (3)
  1. LYRICA [Suspect]
     Indication: DIABETIC NEUROPATHY
     Dosage: 5 MG, 2X/DAY
     Route: 048
     Dates: start: 20091201, end: 20100201
  2. METFORMIN [Concomitant]
     Dosage: UNK
  3. PROCARDIA [Concomitant]
     Dosage: UNK

REACTIONS (3)
  - DIZZINESS [None]
  - GAIT DISTURBANCE [None]
  - THYROID DISORDER [None]
